FAERS Safety Report 21610984 (Version 2)
Quarter: 2022Q4

REPORT INFORMATION
  Report Type: Spontaneous
  Country: SG (occurrence: SG)
  Receive Date: 20221117
  Receipt Date: 20221128
  Transmission Date: 20230112
  Serious: Yes (Other)
  Sender: FDA-Public Use
  Company Number: SG-MLMSERVICE-20221103-3900201-1

PATIENT
  Sex: Male

DRUGS (1)
  1. IBUPROFEN [Suspect]
     Active Substance: IBUPROFEN
     Indication: Product used for unknown indication
     Dosage: UNK, UNK
     Route: 065

REACTIONS (2)
  - Angioedema [Unknown]
  - Drug hypersensitivity [Unknown]
